FAERS Safety Report 24973616 (Version 5)
Quarter: 2025Q2

REPORT INFORMATION
  Report Type: Report from Study
  Country: US (occurrence: US)
  Receive Date: 20250217
  Receipt Date: 20250609
  Transmission Date: 20250716
  Serious: No
  Sender: SUNOVION
  Company Number: US-SUMITOMO PHARMA SWITZERLAND GMBH-2025SPA001583

PATIENT

DRUGS (1)
  1. ORGOVYX [Suspect]
     Active Substance: RELUGOLIX
     Indication: Prostate cancer
     Dosage: 120 MG, QD
     Route: 048
     Dates: start: 20250221

REACTIONS (18)
  - Pollakiuria [Unknown]
  - Abdominal fat apron [Unknown]
  - Brain fog [Unknown]
  - Raynaud^s phenomenon [Unknown]
  - Muscle atrophy [Not Recovered/Not Resolved]
  - Feeling abnormal [Unknown]
  - Testicular atrophy [Unknown]
  - Exercise tolerance decreased [Unknown]
  - Foot deformity [Unknown]
  - Mood altered [Unknown]
  - Night sweats [Unknown]
  - Alopecia [Unknown]
  - Asthenia [Unknown]
  - Hot flush [Unknown]
  - Hyperhidrosis [Unknown]
  - Myalgia [Unknown]
  - Gynaecomastia [Unknown]
  - Incorrect dose administered [Unknown]
